FAERS Safety Report 5751460-5 (Version None)
Quarter: 2008Q2

REPORT INFORMATION
  Report Type: 
  Country: None (occurrence: None)
  Receive Date: 20080527
  Receipt Date: 20080313
  Transmission Date: 20081010
  Serious: No
  Sender: FDA-Public Use
  Company Number: ADE# 08-035

PATIENT
  Sex: Female

DRUGS (1)
  1. CETIRIZINE HYDROCHLORIDE TABLETS, ALLERGY, 10MG [Suspect]
     Dates: start: 20071201

REACTIONS (1)
  - DRUG EFFECT DECREASED [None]
